FAERS Safety Report 17353510 (Version 1)
Quarter: 2020Q1

REPORT INFORMATION
  Report Type: Spontaneous
  Country: US (occurrence: US)
  Receive Date: 20200115
  Receipt Date: 20200115
  Transmission Date: 20200409
  Serious: Yes (Hospitalization)
  Sender: FDA-Public Use
  Company Number: None

PATIENT
  Age: 12 Year
  Sex: Female
  Weight: 41.7 kg

DRUGS (6)
  1. METHOTREXATE. [Suspect]
     Active Substance: METHOTREXATE
     Dates: end: 20200103
  2. CYTARABINE. [Suspect]
     Active Substance: CYTARABINE
     Dates: end: 20191205
  3. PREDNISOLONE. [Suspect]
     Active Substance: PREDNISOLONE
     Dates: end: 20200103
  4. VINCRISTINE SULFATE. [Suspect]
     Active Substance: VINCRISTINE SULFATE
     Dates: end: 20191228
  5. ONCASPAR [Suspect]
     Active Substance: PEGASPARGASE
     Dates: end: 20191210
  6. DAUNORUBICIN [Suspect]
     Active Substance: DAUNORUBICIN
     Dates: end: 20191227

REACTIONS (4)
  - Posterior reversible encephalopathy syndrome [None]
  - Visual field defect [None]
  - Seizure [None]
  - Vomiting [None]

NARRATIVE: CASE EVENT DATE: 20200107
